FAERS Safety Report 4790437-3 (Version None)
Quarter: 2005Q4

REPORT INFORMATION
  Report Type: 
  Country: None (occurrence: None)
  Receive Date: 20051005
  Receipt Date: 20050920
  Transmission Date: 20060501
  Serious: Yes (Hospitalization, Other)
  Sender: FDA-Public Use
  Company Number: USA050496061

PATIENT
  Age: 35 Year
  Sex: Female

DRUGS (8)
  1. CYMBALTA [Suspect]
     Indication: DEPRESSION
     Dosage: 60 MG/EVERY DAY
     Dates: start: 20050101
  2. NEXIUM [Concomitant]
  3. INDERAL LA [Concomitant]
  4. ESTRATEST H.S. [Concomitant]
  5. TRICOR [Concomitant]
  6. DITROPAN XL [Concomitant]
  7. PERCOCET [Concomitant]
  8. LAMICTAL [Concomitant]

REACTIONS (8)
  - CONDITION AGGRAVATED [None]
  - DEPRESSION [None]
  - OVERDOSE [None]
  - PARANOIA [None]
  - STRESS [None]
  - SUICIDAL IDEATION [None]
  - THINKING ABNORMAL [None]
  - TREATMENT NONCOMPLIANCE [None]
